FAERS Safety Report 6843049-1 (Version None)
Quarter: 2010Q3

REPORT INFORMATION
  Report Type: 
  Country: None (occurrence: None)
  Receive Date: 20100712
  Receipt Date: 20100629
  Transmission Date: 20110219
  Serious: Yes (Other)
  Sender: FDA-Public Use
  Company Number: 100146

PATIENT
  Age: 47 Year
  Sex: Female
  Weight: 54.8852 kg

DRUGS (2)
  1. HALFLYTELY [Suspect]
     Indication: COLONOSCOPY
     Dosage: 10MG/1X/PO
     Route: 048
     Dates: start: 20100622
  2. TOPAMAX [Concomitant]

REACTIONS (1)
  - ANAPHYLACTIC REACTION [None]
